FAERS Safety Report 5166134-1 (Version None)
Quarter: 2006Q4

REPORT INFORMATION
  Report Type: 
  Country: None (occurrence: None)
  Receive Date: 20061129
  Receipt Date: 20061119
  Transmission Date: 20070319
  Serious: Yes (Other)
  Sender: FDA-Public Use
  Company Number: 2006142984

PATIENT
  Sex: Male

DRUGS (1)
  1. FRESHBURST LISTERINE (MENTHOL, METHYL SALICYLATE, EUCALYPTOL, THYMOL) [Suspect]
     Indication: ALCOHOL USE
     Dosage: 3 BOTTLES IN 1 DAY, ORAL
     Route: 048
     Dates: start: 20061119

REACTIONS (2)
  - DRUG ABUSER [None]
  - INCORRECT ROUTE OF DRUG ADMINISTRATION [None]
